FAERS Safety Report 21402910 (Version 1)
Quarter: 2022Q4

REPORT INFORMATION
  Report Type: Spontaneous
  Country: US (occurrence: US)
  Receive Date: 20221003
  Receipt Date: 20221003
  Transmission Date: 20230113
  Serious: Yes (Other)
  Sender: FDA-Public Use
  Company Number: US-MLMSERVICE-20220912-3789642-1

PATIENT
  Age: 26 Year
  Sex: Female

DRUGS (4)
  1. BUPRENORPHINE\NALOXONE [Suspect]
     Active Substance: BUPRENORPHINE\NALOXONE
     Indication: Drug use disorder
     Dosage: UNKNOWN; SUSPENDED MAT FOR SEVERAL DAYS AND EVENTUALLY RESUMED
     Route: 060
  2. BUPRENORPHINE\NALOXONE [Suspect]
     Active Substance: BUPRENORPHINE\NALOXONE
     Dosage: UNKNOWN
     Route: 060
  3. BUPRENORPHINE\NALOXONE [Suspect]
     Active Substance: BUPRENORPHINE\NALOXONE
     Dosage: UNKNOWN; DOSE INCREASED
     Route: 060
  4. DULOXETINE [Concomitant]
     Active Substance: DULOXETINE
     Indication: Depression
     Route: 048

REACTIONS (5)
  - Agitation [Recovered/Resolved]
  - Hypopnoea [Recovered/Resolved]
  - Somnambulism [Recovered/Resolved]
  - Posturing [Recovered/Resolved]
  - Central sleep apnoea syndrome [Recovered/Resolved]
